FAERS Safety Report 10261362 (Version 1)
Quarter: 2014Q2

REPORT INFORMATION
  Report Type: Spontaneous
  Country: US (occurrence: US)
  Receive Date: 20140626
  Receipt Date: 20140626
  Transmission Date: 20141212
  Serious: Yes (Hospitalization)
  Sender: FDA-Public Use
  Company Number: US-BAYER-2014-094954

PATIENT
  Age: 31 Year
  Sex: Female
  Weight: 54 kg

DRUGS (13)
  1. YAZ [Suspect]
  2. YASMIN [Suspect]
  3. OCELLA [Suspect]
  4. SPIRONOLACTONE [Concomitant]
     Indication: ACNE
     Dosage: UNK
     Dates: start: 20110522, end: 20110904
  5. MOTRIN [Concomitant]
  6. LORTAB [Concomitant]
  7. MORPHINE [Concomitant]
     Indication: PAIN MANAGEMENT
  8. ZOFRAN [Concomitant]
  9. VENTOLIN [Concomitant]
     Dosage: UNK UNK, PRN
     Dates: start: 20110801
  10. NICOTINE [Concomitant]
  11. PERCOCET [Concomitant]
     Indication: PAIN MANAGEMENT
  12. LIDODERM [Concomitant]
     Indication: PAIN MANAGEMENT
  13. INSULIN [Concomitant]

REACTIONS (1)
  - Pulmonary embolism [None]
